FAERS Safety Report 5612971-6 (Version None)
Quarter: 2008Q1

REPORT INFORMATION
  Report Type: 
  Country: None (occurrence: None)
  Receive Date: 20080204
  Receipt Date: 20080128
  Transmission Date: 20080703
  Serious: Yes (Other)
  Sender: FDA-Public Use
  Company Number: US-GILEAD-2008-0015119

PATIENT
  Sex: Male
  Weight: 131.66 kg

DRUGS (6)
  1. LETAIRIS [Suspect]
     Indication: PULMONARY HYPERTENSION
     Route: 048
     Dates: start: 20071204, end: 20080125
  2. HUMALOG [Concomitant]
     Dosage: 75/25
     Route: 058
  3. ZOCOR [Concomitant]
     Route: 048
  4. ASPIRIN [Concomitant]
     Route: 048
  5. COUMADIN [Concomitant]
     Dosage: VARIABLE DEPENDING ON INR
  6. OXYGEN [Concomitant]
     Dosage: 4 L/MIN
     Route: 055

REACTIONS (1)
  - PRESYNCOPE [None]
